FAERS Safety Report 9542509 (Version 2)
Quarter: 2013Q3

REPORT INFORMATION
  Report Type: Report from Study
  Country: US (occurrence: US)
  Receive Date: 20130923
  Receipt Date: 20130923
  Transmission Date: 20140515
  Serious: Yes (Hospitalization)
  Sender: FDA-Public Use
  Company Number: US-TAKEDA-2013TUS000073

PATIENT
  Age: 61 Year
  Sex: Male
  Weight: 92.3 kg

DRUGS (20)
  1. BLINDED ALLOPURINOL [Suspect]
     Indication: HYPERURICAEMIA
     Dosage: UNK, QD
     Route: 048
     Dates: start: 20130222, end: 20130827
  2. BLINDED FEBUXOSTAT [Suspect]
     Indication: HYPERURICAEMIA
     Dosage: UNK, QD
     Route: 048
     Dates: start: 20130222, end: 20130827
  3. PRADAXA [Concomitant]
     Indication: CEREBROVASCULAR ACCIDENT PROPHYLAXIS
     Dosage: 150 MG, BID
     Route: 048
     Dates: start: 2011
  4. DIGOXIN [Concomitant]
     Indication: HEART RATE IRREGULAR
     Dosage: 0.25 MG, QD
     Route: 048
     Dates: start: 201103
  5. ONGLYZA [Concomitant]
     Indication: DIABETES MELLITUS
     Dosage: 5 MG, QD
     Route: 048
     Dates: start: 201206
  6. GABAPENTIN [Concomitant]
     Indication: DIABETIC NEUROPATHY
     Dosage: 100 MG, TID
     Route: 048
     Dates: start: 2011
  7. SERTRALINE [Concomitant]
     Indication: DEPRESSION
     Dosage: 50 MG, QD
     Route: 048
     Dates: start: 2011
  8. LEVETIRACETAM [Concomitant]
     Indication: CONVULSION
     Dosage: 750 MG, BID
     Route: 048
     Dates: start: 201012
  9. AMLODIPINE [Concomitant]
     Indication: HYPERTENSION
     Dosage: 5 MG, QD
     Route: 048
     Dates: start: 2011
  10. METOPROLOL [Concomitant]
     Indication: HYPERTENSION
     Dosage: 50 MG, QD
     Route: 048
     Dates: start: 2011
  11. PREDNISONE [Concomitant]
     Indication: GOUT
     Dosage: 10 MG, QD
     Route: 048
     Dates: start: 201108
  12. COLACE [Concomitant]
     Indication: CONSTIPATION
     Dosage: 100 MG, QD
     Route: 048
     Dates: start: 2011
  13. PROTONIX                           /01263201/ [Concomitant]
     Indication: GASTROOESOPHAGEAL REFLUX DISEASE
     Dosage: 40 MG, QD
     Route: 048
     Dates: start: 2010
  14. LEVEMIR [Concomitant]
     Indication: DIABETES MELLITUS
     Dosage: 10 UNK, BID
     Route: 058
     Dates: start: 20121218
  15. VITAMIN B12 [Concomitant]
     Indication: SUPPLEMENTATION THERAPY
     Dosage: 250 MG, QD
     Route: 048
     Dates: start: 2011
  16. VIT B 6 [Concomitant]
     Indication: SUPPLEMENTATION THERAPY
     Dosage: 100 MCG, QD
     Route: 048
     Dates: start: 2011
  17. VIT D 3 [Concomitant]
     Indication: SUPPLEMENTATION THERAPY
     Dosage: 1000 MG, QD
     Route: 048
     Dates: start: 2011
  18. LISINOPRIL [Concomitant]
     Indication: HYPERTENSION
     Dosage: 2.5 MG, QD
     Route: 048
     Dates: start: 20121218
  19. SIMVASTATIN [Concomitant]
     Indication: DYSLIPIDAEMIA
     Dosage: 40 MG, QD
     Route: 048
     Dates: start: 20121218
  20. COLCHICINE [Concomitant]
     Indication: GOUT
     Dosage: .6 MG, QD
     Route: 048
     Dates: start: 20130222

REACTIONS (1)
  - Fall [Recovered/Resolved]
